FAERS Safety Report 5017210-5 (Version None)
Quarter: 2006Q2

REPORT INFORMATION
  Report Type: 
  Country: None (occurrence: None)
  Receive Date: 20060602
  Receipt Date: 20060523
  Transmission Date: 20061013
  Serious: Yes (Other)
  Sender: FDA-Public Use
  Company Number: CA-ABBOTT-06P-028-0334028-00

PATIENT
  Sex: Female

DRUGS (7)
  1. RITONAVIR SOFT GELATIN CAPSULES [Suspect]
     Indication: PROPHYLAXIS
     Dates: start: 20060324
  2. EFAVIRENZ [Suspect]
     Indication: HIV TEST POSITIVE
     Route: 048
     Dates: start: 20050422, end: 20060323
  3. ATAZANAVIR [Suspect]
     Indication: PROPHYLAXIS
     Dates: start: 20060324
  4. LAMIVUDINE [Suspect]
     Indication: HIV TEST POSITIVE
     Route: 048
     Dates: start: 20050422
  5. ABACAVIR SULFATE [Suspect]
     Indication: HIV TEST POSITIVE
     Route: 048
     Dates: start: 20050422
  6. LAMIVUDINE + ZIDOVUDINE [Suspect]
     Indication: PROPHYLAXIS
     Dates: start: 20060324
  7. EUGYNON [Concomitant]
     Indication: ORAL CONTRACEPTION
     Dates: start: 20051203, end: 20060324

REACTIONS (3)
  - ABORTION SPONTANEOUS [None]
  - DRUG EXPOSURE DURING PREGNANCY [None]
  - PREGNANCY [None]
